FAERS Safety Report 13534220 (Version 1)
Quarter: 2017Q2

REPORT INFORMATION
  Report Type: Spontaneous
  Country: US (occurrence: US)
  Receive Date: 20170510
  Receipt Date: 20170510
  Transmission Date: 20170830
  Serious: No
  Sender: FDA-Public Use
  Company Number: US-SPEAR PHARMACEUTICALS-2020553

PATIENT
  Age: 70 Year
  Sex: Male
  Weight: 73.64 kg

DRUGS (1)
  1. FLUOROURACIL. [Suspect]
     Active Substance: FLUOROURACIL
     Indication: ACTINIC KERATOSIS
     Route: 061
     Dates: start: 20160317, end: 20160331

REACTIONS (5)
  - Skin fissures [None]
  - Thermal burn [None]
  - Skin haemorrhage [None]
  - Rash pustular [None]
  - Pain [None]

NARRATIVE: CASE EVENT DATE: 20160426
